FAERS Safety Report 18877040 (Version 1)
Quarter: 2021Q1

REPORT INFORMATION
  Report Type: Spontaneous
  Country: US (occurrence: US)
  Receive Date: 20210211
  Receipt Date: 20210211
  Transmission Date: 20210420
  Serious: Yes (Other)
  Sender: FDA-Public Use
  Company Number: US-SA-2021SA044845

PATIENT
  Sex: Female

DRUGS (1)
  1. DUPIXENT [Suspect]
     Active Substance: DUPILUMAB
     Indication: DERMATITIS ATOPIC
     Dosage: 300 MG, QOW
     Route: 058
     Dates: start: 20200507

REACTIONS (6)
  - Rash [Unknown]
  - Skin irritation [Recovering/Resolving]
  - Skin haemorrhage [Unknown]
  - Eye disorder [Unknown]
  - Drug ineffective [Unknown]
  - Psoriasis [Unknown]
